FAERS Safety Report 15615447 (Version 1)
Quarter: 2018Q4

REPORT INFORMATION
  Report Type: Spontaneous
  Country: US (occurrence: US)
  Receive Date: 20181114
  Receipt Date: 20181114
  Transmission Date: 20190205
  Serious: No
  Sender: FDA-Public Use
  Company Number: US-CIPLA LTD.-2018US20415

PATIENT

DRUGS (2)
  1. RALOXIFENE. [Suspect]
     Active Substance: RALOXIFENE
     Dosage: UNK, MADE BY AMNEAL
     Route: 065
  2. RALOXIFENE. [Suspect]
     Active Substance: RALOXIFENE
     Indication: PRODUCT USED FOR UNKNOWN INDICATION
     Dosage: UNK
     Route: 065

REACTIONS (2)
  - Adverse event [Unknown]
  - Product substitution issue [Unknown]
